FAERS Safety Report 20586048 (Version 1)
Quarter: 2022Q1

REPORT INFORMATION
  Report Type: Report from Study
  Country: GB (occurrence: GB)
  Receive Date: 20220313
  Receipt Date: 20220313
  Transmission Date: 20220423
  Serious: Yes (Death, Other)
  Sender: FDA-Public Use
  Company Number: GB-AMGEN-GBRNI2022043054

PATIENT
  Age: 77 Year

DRUGS (2)
  1. AMG-510 [Suspect]
     Active Substance: AMG-510
     Indication: Non-small cell lung cancer stage IV
     Dosage: UNK
     Route: 065
     Dates: start: 20210305, end: 20210601
  2. AMG-510 [Suspect]
     Active Substance: AMG-510
     Indication: K-ras gene mutation

REACTIONS (1)
  - Non-small cell lung cancer [Fatal]
